FAERS Safety Report 10936975 (Version 2)
Quarter: 2015Q1

REPORT INFORMATION
  Report Type: Spontaneous
  Country: US (occurrence: None)
  Receive Date: 20150212
  Receipt Date: 20150212
  Transmission Date: 20150721
  Serious: No
  Sender: FDA-Public Use
  Company Number: TPA2011A04516

PATIENT
  Age: 87 Year
  Sex: Female
  Weight: 90.72 kg

DRUGS (5)
  1. MICARDIS [Concomitant]
     Active Substance: TELMISARTAN
  2. ULORIC [Suspect]
     Active Substance: FEBUXOSTAT
     Indication: GOUT
     Route: 048
     Dates: start: 20110722, end: 201209
  3. ZEMPLAR [Concomitant]
     Active Substance: PARICALCITOL
  4. PROPRANOLOL [Concomitant]
     Active Substance: PROPRANOLOL\PROPRANOLOL HYDROCHLORIDE
  5. VITAMIN D (ERGOCALCIFEROL) [Concomitant]
     Active Substance: ERGOCALCIFEROL

REACTIONS (1)
  - Nausea [None]
